FAERS Safety Report 15601443 (Version 8)
Quarter: 2020Q1

REPORT INFORMATION
  Report Type: Report from Study
  Country: None (occurrence: CA)
  Receive Date: 20181109
  Receipt Date: 20200227
  Transmission Date: 20200409
  Serious: Yes (Hospitalization, Other)
  Sender: FDA-Public Use
  Company Number: CA-ABBVIE-18K-028-2547102-00

PATIENT
  Age: 28 Year
  Sex: Female

DRUGS (3)
  1. HUMIRA [Suspect]
     Active Substance: ADALIMUMAB
     Route: 058
     Dates: start: 20141229, end: 2018
  2. HUMIRA [Suspect]
     Active Substance: ADALIMUMAB
     Indication: COLITIS ULCERATIVE
     Route: 058
  3. HUMIRA [Suspect]
     Active Substance: ADALIMUMAB
     Route: 058
     Dates: start: 2018

REACTIONS (26)
  - Injection site erythema [Recovered/Resolved]
  - Injection site pain [Not Recovered/Not Resolved]
  - Burning sensation [Not Recovered/Not Resolved]
  - Sports injury [Unknown]
  - General physical condition abnormal [Unknown]
  - Injection site swelling [Recovered/Resolved]
  - Paraesthesia [Unknown]
  - Malaise [Not Recovered/Not Resolved]
  - Abnormal faeces [Not Recovered/Not Resolved]
  - Device difficult to use [Unknown]
  - Injection site haemorrhage [Unknown]
  - Fatigue [Recovered/Resolved]
  - Skin reaction [Unknown]
  - Pneumothorax [Not Recovered/Not Resolved]
  - Muscle tightness [Not Recovered/Not Resolved]
  - Pulmonary oedema [Not Recovered/Not Resolved]
  - Muscle spasms [Not Recovered/Not Resolved]
  - Pain [Not Recovered/Not Resolved]
  - Coagulation time prolonged [Unknown]
  - Fatigue [Not Recovered/Not Resolved]
  - Musculoskeletal chest pain [Unknown]
  - Pulmonary embolism [Recovering/Resolving]
  - Musculoskeletal pain [Not Recovered/Not Resolved]
  - Injection site irritation [Recovered/Resolved]
  - Colitis ulcerative [Not Recovered/Not Resolved]
  - Venous injury [Unknown]

NARRATIVE: CASE EVENT DATE: 2018
